FAERS Safety Report 13134257 (Version 2)
Quarter: 2017Q2

REPORT INFORMATION
  Report Type: Spontaneous
  Country: US (occurrence: US)
  Receive Date: 20170120
  Receipt Date: 20170407
  Transmission Date: 20170830
  Serious: No
  Sender: FDA-Public Use
  Company Number: US-PFIZER INC-2017022304

PATIENT
  Age: 54 Year
  Sex: Male

DRUGS (1)
  1. VANCOMYCIN HCL [Suspect]
     Active Substance: VANCOMYCIN HYDROCHLORIDE
     Indication: INFECTION
     Dosage: 1750 MG, 2X/DAY
     Dates: start: 20140701, end: 20140820

REACTIONS (5)
  - Cardiac disorder [Recovered/Resolved]
  - Vomiting [Recovered/Resolved]
  - Joint swelling [Recovered/Resolved]
  - Diarrhoea [Recovered/Resolved]
  - Nausea [Recovered/Resolved]

NARRATIVE: CASE EVENT DATE: 20140801
